FAERS Safety Report 19047639 (Version 1)
Quarter: 2021Q1

REPORT INFORMATION
  Report Type: Spontaneous
  Country: GB (occurrence: GB)
  Receive Date: 20210323
  Receipt Date: 20210323
  Transmission Date: 20210420
  Serious: Yes (Other)
  Sender: FDA-Public Use
  Company Number: GB-JNJFOC-20210342443

PATIENT
  Age: 27 Year
  Sex: Female
  Weight: 93.43 kg

DRUGS (1)
  1. OVEX [Suspect]
     Active Substance: MEBENDAZOLE
     Indication: ILL-DEFINED DISORDER
     Dosage: 1 TABLET
     Route: 048
     Dates: start: 20210318, end: 20210318

REACTIONS (1)
  - Adverse drug reaction [Recovering/Resolving]

NARRATIVE: CASE EVENT DATE: 20210319
